FAERS Safety Report 19290648 (Version 3)
Quarter: 2021Q3

REPORT INFORMATION
  Report Type: Report from Study
  Country: US (occurrence: US)
  Receive Date: 20210522
  Receipt Date: 20210803
  Transmission Date: 20211014
  Serious: No
  Sender: FDA-Public Use
  Company Number: NVSC2021US107845

PATIENT
  Sex: Female

DRUGS (1)
  1. COSENTYX [Suspect]
     Active Substance: SECUKINUMAB
     Indication: PSORIASIS
     Dosage: UNK UNK, QMO
     Route: 058

REACTIONS (6)
  - COVID-19 [Recovering/Resolving]
  - Alopecia [Unknown]
  - Psoriasis [Unknown]
  - Sinusitis [Unknown]
  - Throat irritation [Unknown]
  - Feeling abnormal [Unknown]
